FAERS Safety Report 9275543 (Version 1)
Quarter: 2013Q2

REPORT INFORMATION
  Report Type: Spontaneous
  Country: JP (occurrence: None)
  Receive Date: 20130430
  Receipt Date: 20130430
  Transmission Date: 20140414
  Serious: Yes (Hospitalization)
  Sender: FDA-Public Use
  Company Number: SPI201300264

PATIENT
  Sex: Male

DRUGS (1)
  1. AMITIZA [Suspect]
     Route: 048

REACTIONS (2)
  - Blood pressure decreased [None]
  - Nausea [None]
